FAERS Safety Report 8025355-0 (Version None)
Quarter: 2011Q4

REPORT INFORMATION
  Report Type: 
  Country: None (occurrence: None)
  Receive Date: 20111130
  Receipt Date: 20111107
  Transmission Date: 20120403
  Serious: Yes (Other)
  Sender: FDA-Public Use
  Company Number: 335948

PATIENT
  Age: 59 Year
  Sex: Female

DRUGS (6)
  1. NOVOLOG [Suspect]
     Indication: DIABETES MELLITUS
     Dosage: SCALE BEFORE BREAKFAST, LUNCH, DINNER AND EVEN BEDTIME, SUBCUTANEOUS
     Route: 058
  2. LEVEMIR [Suspect]
     Indication: DIABETES MELLITUS
  3. AVAPRO [Concomitant]
  4. AMLODIPINE [Concomitant]
  5. METOPROLOL TARTRATE [Concomitant]
  6. PANTOPRAZOLE [Concomitant]

REACTIONS (1)
  - HYPOGLYCAEMIC SEIZURE [None]
